FAERS Safety Report 9023584 (Version 1)
Quarter: 2013Q1

REPORT INFORMATION
  Report Type: Spontaneous
  Country: JP (occurrence: JP)
  Receive Date: 20130121
  Receipt Date: 20130121
  Transmission Date: 20140127
  Serious: Yes (Hospitalization)
  Sender: FDA-Public Use
  Company Number: JP-NOVOPROD-369072

PATIENT
  Age: 72 Year
  Sex: Male
  Weight: 59 kg

DRUGS (8)
  1. LEVEMIR [Suspect]
     Indication: TYPE 1 DIABETES MELLITUS
     Dosage: 10 U, QD
     Route: 065
  2. NOVOLIN [Suspect]
     Indication: TYPE 1 DIABETES MELLITUS
     Dosage: 21 U, QD (7-7-7)
     Route: 065
  3. NOVORAPID [Suspect]
     Indication: TYPE 1 DIABETES MELLITUS
     Dosage: 15 IU, QD
     Route: 058
  4. INSULIN GLARGINE [Suspect]
     Indication: TYPE 1 DIABETES MELLITUS
     Dosage: 8 U, QD
     Route: 058
  5. ALFACALCIDOL [Concomitant]
     Indication: PRODUCT USED FOR UNKNOWN INDICATION
     Dosage: 0.25 MG, QD
     Route: 048
  6. CLOPIDOGREL SULFATE [Concomitant]
     Dosage: 75 MG, QD
     Route: 048
  7. EPADEL                             /01682401/ [Concomitant]
     Dosage: 1800 MG, QD
     Route: 048
  8. EPALRESTAT [Concomitant]
     Dosage: 150 MG, QD
     Route: 048

REACTIONS (2)
  - Anti-insulin antibody positive [Not Recovered/Not Resolved]
  - Diabetes mellitus inadequate control [Unknown]
